FAERS Safety Report 7259111 (Version 1)
Quarter: 2020Q3

REPORT INFORMATION
  Report Type: Report from Study
  Country: CA (occurrence: CA)
  Receive Date: 20100128
  Receipt Date: 20100128
  Transmission Date: 20201104
  Serious: Yes (Disabling)
  Sender: FDA-Public Use
  Company Number: CA-JNJFOC-20100107401

PATIENT
  Age: 56 Year
  Sex: Female
  Weight: 69 kg

DRUGS (4)
  1. GOLIMUMAB [Suspect]
     Active Substance: GOLIMUMAB
     Indication: ANKYLOSING SPONDYLITIS
     Route: 058
  2. ACTONEL [Concomitant]
     Active Substance: RISEDRONATE SODIUM
     Route: 048
  3. GOLIMUMAB [Suspect]
     Active Substance: GOLIMUMAB
     Route: 058
  4. CELECOXIB. [Concomitant]
     Active Substance: CELECOXIB
     Route: 048

REACTIONS (1)
  - Multiple sclerosis [Not Recovered/Not Resolved]

NARRATIVE: CASE EVENT DATE: 20100105
